FAERS Safety Report 13132568 (Version 1)
Quarter: 2017Q1

REPORT INFORMATION
  Report Type: Spontaneous
  Country: US (occurrence: US)
  Receive Date: 20170120
  Receipt Date: 20170120
  Transmission Date: 20170428
  Serious: Yes (Other)
  Sender: FDA-Public Use
  Company Number: PHEH2017US001394

PATIENT
  Age: 44 Year
  Sex: Male

DRUGS (12)
  1. FOLFOX [Suspect]
     Active Substance: FLUOROURACIL\LEUCOVORIN CALCIUM\OXALIPLATIN
     Indication: BRCA2 GENE MUTATION
     Dosage: UNK
     Route: 065
  2. FOLFIRI [Suspect]
     Active Substance: FLUOROURACIL\IRINOTECAN\LEUCOVORIN
     Indication: NEUROENDOCRINE CARCINOMA
  3. DABRAFENIB [Suspect]
     Active Substance: DABRAFENIB
     Indication: BRCA2 GENE MUTATION
     Dosage: UNK
     Route: 065
  4. TRAMETINIB [Suspect]
     Active Substance: TRAMETINIB
     Indication: COLON CANCER
  5. FOLFIRI [Suspect]
     Active Substance: FLUOROURACIL\IRINOTECAN\LEUCOVORIN
     Indication: BRCA2 GENE MUTATION
     Dosage: UNK
     Route: 065
  6. TRAMETINIB [Suspect]
     Active Substance: TRAMETINIB
     Indication: NEUROENDOCRINE CARCINOMA
  7. TRAMETINIB [Suspect]
     Active Substance: TRAMETINIB
     Indication: BRCA2 GENE MUTATION
     Dosage: UNK
     Route: 065
  8. FOLFIRI [Suspect]
     Active Substance: FLUOROURACIL\IRINOTECAN\LEUCOVORIN
     Indication: COLON CANCER
  9. DABRAFENIB [Suspect]
     Active Substance: DABRAFENIB
     Indication: COLON CANCER
  10. FOLFOX [Suspect]
     Active Substance: FLUOROURACIL\LEUCOVORIN CALCIUM\OXALIPLATIN
     Indication: NEUROENDOCRINE CARCINOMA
  11. DABRAFENIB [Suspect]
     Active Substance: DABRAFENIB
     Indication: NEUROENDOCRINE CARCINOMA
  12. FOLFOX [Suspect]
     Active Substance: FLUOROURACIL\LEUCOVORIN CALCIUM\OXALIPLATIN
     Indication: COLON CANCER

REACTIONS (9)
  - Malignant neoplasm progression [Unknown]
  - Blood urea decreased [Unknown]
  - Haematocrit decreased [Unknown]
  - Blood sodium decreased [Unknown]
  - Blood glucose increased [Unknown]
  - Red cell distribution width increased [Unknown]
  - Red blood cell count decreased [Unknown]
  - Haemoglobin decreased [Unknown]
  - Product use issue [Unknown]

NARRATIVE: CASE EVENT DATE: 20161111
